FAERS Safety Report 6983367-X (Version None)
Quarter: 2010Q3

REPORT INFORMATION
  Report Type: 
  Country: None (occurrence: None)
  Receive Date: 20100914
  Receipt Date: 20100914
  Transmission Date: 20110219
  Serious: Yes (Other)
  Sender: FDA-Public Use
  Company Number: None

PATIENT
  Sex: Female
  Weight: 89.3586 kg

DRUGS (1)
  1. YAZ [Suspect]
     Indication: CONTRACEPTION
     Dosage: 1 A DAY PO
     Route: 048
     Dates: start: 20071010, end: 20080321

REACTIONS (3)
  - CHOLECYSTECTOMY [None]
  - IRRITABLE BOWEL SYNDROME [None]
  - SOCIAL PROBLEM [None]
